FAERS Safety Report 5244974-8 (Version None)
Quarter: 2007Q1

REPORT INFORMATION
  Report Type: 
  Country: None (occurrence: None)
  Receive Date: 20070221
  Receipt Date: 20070221
  Transmission Date: 20070707
  Serious: Yes (Other)
  Sender: FDA-Public Use
  Company Number: None

PATIENT
  Age: 61 Year
  Sex: Male
  Weight: 99.7913 kg

DRUGS (1)
  1. VITAMIN A + VITAMIN D OINTMENT [Suspect]
     Indication: LYMPHOEDEMA
     Dosage: ONCE A WEEK OR 2 WKS TOPICAL
     Route: 061

REACTIONS (2)
  - PHARMACEUTICAL PRODUCT COMPLAINT [None]
  - SKIN DISCOLOURATION [None]
